FAERS Safety Report 5452074-7 (Version None)
Quarter: 2007Q3

REPORT INFORMATION
  Report Type: 
  Country: None (occurrence: None)
  Receive Date: 20070912
  Receipt Date: 20070828
  Transmission Date: 20080115
  Serious: Yes (Death)
  Sender: FDA-Public Use
  Company Number: 018162

PATIENT
  Age: 5 Year
  Sex: Male

DRUGS (5)
  1. CARBOPLATIN (CARBOPLATIN) INJECTION, 50MG [Suspect]
     Indication: RETINOBLASTOMA BILATERAL
     Dosage: 4000 MG/M2 DAILY
  2. CYCLOPHOSPHAMIDE [Suspect]
     Indication: RETINOBLASTOMA BILATERAL
     Dosage: 7800 MG/M2 DAILY
  3. IDARUBICIN HCL [Suspect]
     Indication: RETINOBLASTOMA BILATERAL
     Dosage: 100 MG/M2 DAILY
  4. ETOPOSIDE [Suspect]
     Indication: RETINOBLASTOMA BILATERAL
     Dosage: 1200 MG/M2 DAILY; 1050 MG/M2 DAILY, 1 CYCLE, ORAL
     Route: 048
  5. VINCRISTINE [Suspect]
     Indication: RETINOBLASTOMA BILATERAL
     Dosage: 6 MG/M2 DAILY

REACTIONS (1)
  - ACUTE MYELOID LEUKAEMIA [None]
